FAERS Safety Report 13583295 (Version 2)
Quarter: 2018Q1

REPORT INFORMATION
  Report Type: Spontaneous
  Country: US (occurrence: US)
  Receive Date: 20170525
  Receipt Date: 20180131
  Transmission Date: 20180508
  Serious: Yes (Hospitalization, Other)
  Sender: FDA-Public Use
  Company Number: US-MYLANLABS-2017M1031100

PATIENT
  Age: 60 Year
  Sex: Male

DRUGS (4)
  1. CLOZAPINE MYLAN [Suspect]
     Active Substance: CLOZAPINE
     Indication: SCHIZOPHRENIA
     Dosage: 125 MG, PM
     Dates: start: 201502
  2. CLOZAPINE MYLAN [Suspect]
     Active Substance: CLOZAPINE
     Dosage: 12.5 MG, QD
  3. CLOZAPINE MYLAN [Suspect]
     Active Substance: CLOZAPINE
     Dosage: 100 MG, UNK
  4. CLOZAPINE MYLAN [Suspect]
     Active Substance: CLOZAPINE
     Dosage: 100 MG, QD

REACTIONS (21)
  - Psychotic disorder [Recovered/Resolved]
  - Mental impairment [Unknown]
  - Deep vein thrombosis [Recovered/Resolved]
  - Electrocardiogram QT prolonged [Unknown]
  - Fatigue [Unknown]
  - Refusal of treatment by patient [Unknown]
  - Pulmonary embolism [Recovered/Resolved]
  - Drooling [Unknown]
  - General physical health deterioration [Unknown]
  - Wheelchair user [Unknown]
  - Accidental overdose [Recovered/Resolved]
  - Transient ischaemic attack [Recovered/Resolved]
  - Dysarthria [Recovered/Resolved]
  - Delirium [Unknown]
  - Dizziness [Recovered/Resolved]
  - Fall [Recovered/Resolved]
  - Peripheral swelling [Recovered/Resolved]
  - Loss of consciousness [Recovered/Resolved]
  - Bundle branch block left [Unknown]
  - Antipsychotic drug level decreased [Unknown]
  - Orthostatic hypotension [Unknown]
